FAERS Safety Report 18608164 (Version 1)
Quarter: 2020Q4

REPORT INFORMATION
  Report Type: Other
  Country: US (occurrence: US)
  Receive Date: 20201211
  Receipt Date: 20201211
  Transmission Date: 20210114
  Serious: Yes (Death)
  Sender: FDA-Public Use
  Company Number: US-ROCHE-2731087

PATIENT
  Sex: Male

DRUGS (2)
  1. RITUXAN [Suspect]
     Active Substance: RITUXIMAB
     Indication: NON-HODGKIN^S LYMPHOMA
     Route: 065
  2. VENCLEXTA [Suspect]
     Active Substance: VENETOCLAX
     Indication: NON-HODGKIN^S LYMPHOMA
     Dosage: DOSE STRENGTH 100 MG, QUANTITY 120, TAKE 4 TABLET(S) BY MOUTH DAILY ;ONGOING: NO
     Route: 048
     Dates: start: 20191211

REACTIONS (3)
  - Death [Fatal]
  - Off label use [Unknown]
  - Intentional product use issue [Unknown]
